FAERS Safety Report 21406660 (Version 3)
Quarter: 2022Q4

REPORT INFORMATION
  Report Type: Spontaneous
  Country: SE (occurrence: SE)
  Receive Date: 20221004
  Receipt Date: 20221014
  Transmission Date: 20230113
  Serious: No
  Sender: FDA-Public Use
  Company Number: SE-ORGANON-O2209SWE002420

PATIENT
  Age: 45 Year
  Sex: Female

DRUGS (3)
  1. EBASTINE [Suspect]
     Active Substance: EBASTINE
     Indication: Allergy to metals
     Dosage: 5 MILLIGRAM, (FORMULATION REPORTED AS FILM COATED TABLET)
     Route: 048
  2. ACETAMINOPHEN [Concomitant]
     Active Substance: ACETAMINOPHEN
     Indication: Pain in jaw
     Dosage: UNK
  3. IBUPROFEN [Concomitant]
     Active Substance: IBUPROFEN
     Indication: Pain in jaw
     Dosage: UNK

REACTIONS (1)
  - Therapeutic response unexpected [Unknown]
